FAERS Safety Report 16230567 (Version 2)
Quarter: 2019Q2

REPORT INFORMATION
  Report Type: Spontaneous
  Country: DE (occurrence: DE)
  Receive Date: 20190423
  Receipt Date: 20190507
  Transmission Date: 20190711
  Serious: Yes (Other)
  Sender: FDA-Public Use
  Company Number: DE-PFIZER INC-2019168429

PATIENT
  Age: 61 Year
  Sex: Female
  Weight: 68 kg

DRUGS (2)
  1. ATORVASTATIN [Concomitant]
     Active Substance: ATORVASTATIN
     Dosage: 20 MG, 1 X 1 TABLET
     Dates: start: 2018
  2. SULFASALAZIN HEXAL [Suspect]
     Active Substance: SULFASALAZINE
     Dosage: 500 MG, 1-0-2
     Dates: start: 201902, end: 20190318

REACTIONS (2)
  - Fall [Unknown]
  - Subdural haematoma [Not Recovered/Not Resolved]

NARRATIVE: CASE EVENT DATE: 20190318
